FAERS Safety Report 14575542 (Version 1)
Quarter: 2018Q1

REPORT INFORMATION
  Report Type: Spontaneous
  Country: US (occurrence: US)
  Receive Date: 20180227
  Receipt Date: 20180227
  Transmission Date: 20180509
  Serious: No
  Sender: FDA-Public Use
  Company Number: US-ROCHE-2032994

PATIENT
  Age: 54 Year
  Sex: Male

DRUGS (6)
  1. FEXOFENADINE [Concomitant]
     Active Substance: FEXOFENADINE\FEXOFENADINE HYDROCHLORIDE
  2. MONTELUKAST [Concomitant]
     Active Substance: MONTELUKAST SODIUM
  3. PROVENTIL [Concomitant]
     Active Substance: ALBUTEROL
  4. PULMICORT TURBUHALER [Concomitant]
     Active Substance: BUDESONIDE
  5. LEVALBUTEROL. [Concomitant]
     Active Substance: LEVALBUTEROL
  6. XOLAIR [Suspect]
     Active Substance: OMALIZUMAB
     Indication: ASTHMA
     Route: 058
     Dates: start: 20171113

REACTIONS (2)
  - Dizziness [Recovered/Resolved]
  - Nausea [Recovered/Resolved]

NARRATIVE: CASE EVENT DATE: 20171113
